FAERS Safety Report 9047099 (Version 1)
Quarter: 2013Q1

REPORT INFORMATION
  Report Type: Spontaneous
  Country: US (occurrence: None)
  Receive Date: 20130130
  Receipt Date: 20130130
  Transmission Date: 20140127
  Serious: Yes (Hospitalization)
  Sender: FDA-Public Use
  Company Number: None

PATIENT
  Age: 85 Year
  Sex: Male
  Weight: 98.6 kg

DRUGS (1)
  1. BACLOFEN [Suspect]
     Indication: PAIN
     Route: 048
     Dates: start: 20121208, end: 20121212

REACTIONS (6)
  - Disorientation [None]
  - Confusional state [None]
  - Dizziness [None]
  - Gait disturbance [None]
  - Mental disorder [None]
  - Activities of daily living impaired [None]
